FAERS Safety Report 8880683 (Version 1)
Quarter: 2012Q4

REPORT INFORMATION
  Report Type: 
  Country: US (occurrence: US)
  Receive Date: 20121101
  Receipt Date: 20121101
  Transmission Date: 20130627
  Serious: Yes (Hospitalization)
  Sender: FDA-Public Use
  Company Number: US-GLAXOSMITHKLINE-A0775450A

PATIENT
  Age: 57 Year
  Sex: Male

DRUGS (1)
  1. AVANDIA [Suspect]
     Indication: DIABETES MELLITUS
     Route: 048
     Dates: start: 2001

REACTIONS (5)
  - Cardiac disorder [Not Recovered/Not Resolved]
  - Amnesia [Unknown]
  - Gastric disorder [Unknown]
  - Balance disorder [Unknown]
  - Musculoskeletal discomfort [Unknown]
